FAERS Safety Report 24979951 (Version 1)
Quarter: 2025Q1

REPORT INFORMATION
  Report Type: Spontaneous
  Country: GB (occurrence: GB)
  Receive Date: 20250218
  Receipt Date: 20250218
  Transmission Date: 20250409
  Serious: Yes (Hospitalization)
  Sender: AUROBINDO
  Company Number: GB-AUROBINDO-AUR-APL-2025-007895

PATIENT
  Age: 7 Year
  Sex: Male
  Weight: 15 kg

DRUGS (9)
  1. ERYTHROMYCIN [Suspect]
     Active Substance: ERYTHROMYCIN
     Indication: Pneumonia
     Dosage: 300 MILLIGRAM, TWO TIMES A DAY [300MG (20 MG/KG/DOSE) EVERY 12 HOURS]
     Route: 048
  2. PIPERACILLIN AND TAZOBACTAM [Suspect]
     Active Substance: PIPERACILLIN SODIUM\TAZOBACTAM SODIUM
     Indication: Pneumonia
     Dosage: 1.5 GRAM, FOUR TIMES/DAY [1.5G (100 MG/KG/ DOSE) EVERY 6 HOUR]
     Route: 065
  3. CEFTAZIDIME [Suspect]
     Active Substance: CEFTAZIDIME
     Indication: Pneumonia
     Dosage: 750 MILLIGRAM, FOUR TIMES/DAY [750MG (50 MG/KG/DOSE) EVERY 6 HOURS]
     Route: 065
  4. AMPICILLIN [Suspect]
     Active Substance: AMPICILLIN
     Indication: Pneumonia
     Dosage: 750 MILLIGRAM, FOUR TIMES/DAY [750MG (50 MG/KG/DOSE) EVERY 6 HOURS]
     Route: 042
  5. CEFUROXIME [Suspect]
     Active Substance: CEFUROXIME
     Indication: Pneumonia
     Dosage: 750 MILLIGRAM, 3 TIMES A DAY [750MG (50 MG/KG/ DOSE) EVERY 8 HOURS]
     Route: 042
  6. MEROPENEM [Suspect]
     Active Substance: MEROPENEM
     Indication: Product used for unknown indication
     Dosage: 600 MILLIGRAM, EVERY FOUR HOUR [600 MG (40 MG/KG/DOSE) INFUSED OVER FOUR HOURS THREE TIMES A DAY]
     Route: 065
  7. MEROPENEM [Suspect]
     Active Substance: MEROPENEM
     Dosage: 2250 MILLIGRAM, ONCE A DAY [(150 MG/KG/ DAY) CONTINUOUS INFUSION]
     Route: 065
  8. MEROPENEM [Suspect]
     Active Substance: MEROPENEM
     Dosage: 2700 MILLIGRAM, ONCE A DAY [(180 MG/KG/DAY) CONTINUOUS INFUSION FROM DAY? 24]
     Route: 065
  9. COTRIMOXAZOLE [Suspect]
     Active Substance: SULFAMETHOXAZOLE\TRIMETHOPRIM
     Indication: Product used for unknown indication
     Dosage: UNK, TWO TIMES A DAY [400 MG/80 MG (~25/ 5 MG/KG) TWICE A DAY]
     Route: 048

REACTIONS (1)
  - Drug ineffective [Unknown]
